FAERS Safety Report 4695617-3 (Version None)
Quarter: 2005Q2

REPORT INFORMATION
  Report Type: 
  Country: None (occurrence: None)
  Receive Date: 20050524
  Receipt Date: 20050428
  Transmission Date: 20051028
  Serious: Yes (Hospitalization)
  Sender: FDA-Public Use
  Company Number: JP-BOEHRINGER INGELHEIM PHARMACEUTICALS, INC.-2005-BP-07633NB

PATIENT
  Age: 72 Year
  Sex: Female

DRUGS (6)
  1. MICARDIS [Suspect]
     Indication: HYPERTENSION
     Route: 048
     Dates: start: 20040801
  2. URSODIOL [Concomitant]
     Route: 048
  3. GLYCYRON [Concomitant]
     Route: 048
  4. NORVASC [Concomitant]
     Route: 048
  5. MEDET [Concomitant]
     Route: 048
  6. AMARYL [Concomitant]
     Route: 048

REACTIONS (1)
  - HYPOGLYCAEMIA [None]
